FAERS Safety Report 14373918 (Version 1)
Quarter: 2020Q3

REPORT INFORMATION
  Report Type: Report from Study
  Country: US (occurrence: US)
  Receive Date: 20180111
  Receipt Date: 20180111
  Transmission Date: 20201104
  Serious: Yes (Hospitalization)
  Sender: FDA-Public Use
  Company Number: US-ASTRAZENECA-2018SE02849

PATIENT
  Age: 56 Year
  Sex: Female
  Weight: 84.5 kg

DRUGS (2)
  1. TREMELIMUMAB. [Suspect]
     Active Substance: TREMELIMUMAB
     Indication: OVARIAN CANCER
     Dosage: EVERY FOUR WEEKS
     Route: 042
  2. DURVALUMAB. [Suspect]
     Active Substance: DURVALUMAB
     Indication: OVARIAN CANCER
     Route: 042

REACTIONS (1)
  - Ascites [Unknown]

NARRATIVE: CASE EVENT DATE: 20171224
